FAERS Safety Report 17249208 (Version 2)
Quarter: 2020Q1

REPORT INFORMATION
  Report Type: Report from Study
  Country: US (occurrence: US)
  Receive Date: 20200108
  Receipt Date: 20200214
  Transmission Date: 20200409
  Serious: Yes (Hospitalization)
  Sender: FDA-Public Use
  Company Number: US-GLAXOSMITHKLINE-US2020TSO002990

PATIENT
  Age: 68 Year
  Sex: Female
  Weight: 62 kg

DRUGS (7)
  1. NIRAPARIB [Suspect]
     Active Substance: NIRAPARIB
     Dosage: UNK
     Route: 048
     Dates: start: 20200106
  2. BEVACIZUMAB. [Suspect]
     Active Substance: BEVACIZUMAB
     Dosage: 900 MG
     Dates: start: 20190820
  3. DOSTARLIMAB [Suspect]
     Active Substance: DOSTARLIMAB
     Dosage: 1000 MG
     Dates: start: 20191223
  4. NIRAPARIB [Suspect]
     Active Substance: NIRAPARIB
     Indication: GASTROINTESTINAL STROMAL TUMOUR
     Dosage: 200 MG
     Route: 048
     Dates: start: 20180515
  5. DOSTARLIMAB [Suspect]
     Active Substance: DOSTARLIMAB
     Indication: GASTROINTESTINAL STROMAL TUMOUR
     Dosage: 500 MG, SINGLE
     Route: 042
     Dates: start: 20180515, end: 20180515
  6. NIRAPARIB [Suspect]
     Active Substance: NIRAPARIB
     Dosage: 100 MG
     Route: 048
     Dates: start: 20200102
  7. BEVACIZUMAB. [Suspect]
     Active Substance: BEVACIZUMAB
     Indication: GASTROINTESTINAL STROMAL TUMOUR
     Dosage: 15 MG/KG
     Route: 042
     Dates: start: 20180515, end: 20180515

REACTIONS (1)
  - Hyponatraemia [Recovered/Resolved]

NARRATIVE: CASE EVENT DATE: 20200103
